FAERS Safety Report 16278479 (Version 1)
Quarter: 2019Q2

REPORT INFORMATION
  Report Type: Report from Study
  Country: US (occurrence: US)
  Receive Date: 20190506
  Receipt Date: 20190506
  Transmission Date: 20190711
  Serious: Yes (Hospitalization)
  Sender: FDA-Public Use
  Company Number: US-EISAI MEDICAL RESEARCH-EC-2019-052390

PATIENT
  Sex: Male
  Weight: 102.3 kg

DRUGS (31)
  1. ROCALTROL [Concomitant]
     Active Substance: CALCITRIOL
  2. PLAVIX [Concomitant]
     Active Substance: CLOPIDOGREL BISULFATE
  3. GLUCAGON. [Concomitant]
     Active Substance: GLUCAGON
  4. PROAMATINE [Concomitant]
     Active Substance: MIDODRINE HYDROCHLORIDE
  5. REGLAN [Concomitant]
     Active Substance: METOCLOPRAMIDE HYDROCHLORIDE
  6. XGEVA [Concomitant]
     Active Substance: DENOSUMAB
  7. SENOKOT [Concomitant]
     Active Substance: SENNOSIDES
  8. ASPIRIN. [Concomitant]
     Active Substance: ASPIRIN
  9. SYNTHROID [Concomitant]
     Active Substance: LEVOTHYROXINE SODIUM
  10. TRADJENTA [Concomitant]
     Active Substance: LINAGLIPTIN
  11. MAGNESIUM OXIDE. [Concomitant]
     Active Substance: MAGNESIUM OXIDE
  12. KENALOG [Concomitant]
     Active Substance: TRIAMCINOLONE ACETONIDE
  13. KENALOG [Concomitant]
     Active Substance: TRIAMCINOLONE ACETONIDE
  14. VITAMIN D3 [Concomitant]
     Active Substance: CHOLECALCIFEROL
  15. TEMOVATE [Concomitant]
     Active Substance: CLOBETASOL PROPIONATE
  16. LENVIMA [Suspect]
     Active Substance: LENVATINIB
     Indication: THYROID CANCER
     Route: 048
     Dates: start: 20190212, end: 20190311
  17. ATORVASTATIN [Concomitant]
     Active Substance: ATORVASTATIN
  18. PEPCID [Concomitant]
     Active Substance: FAMOTIDINE
  19. ZANTAC [Concomitant]
     Active Substance: RANITIDINE HYDROCHLORIDE
  20. COREG [Concomitant]
     Active Substance: CARVEDILOL
  21. LOTRISONE [Concomitant]
     Active Substance: BETAMETHASONE DIPROPIONATE\CLOTRIMAZOLE
  22. NEURONTIN [Concomitant]
     Active Substance: GABAPENTIN
  23. NORCO [Concomitant]
     Active Substance: ACETAMINOPHEN\HYDROCODONE BITARTRATE
  24. BACTROBAN [Concomitant]
     Active Substance: MUPIROCIN\MUPIROCIN CALCIUM
  25. PROTONIX [Concomitant]
     Active Substance: PANTOPRAZOLE SODIUM
  26. MIRALAX [Concomitant]
     Active Substance: POLYETHYLENE GLYCOL 3350
  27. SODIUM CHLORIDE. [Concomitant]
     Active Substance: SODIUM CHLORIDE
  28. FERROUS SULFATE. [Concomitant]
     Active Substance: FERROUS SULFATE
  29. ZYLOPRIM [Concomitant]
     Active Substance: ALLOPURINOL
  30. MIRALAX [Concomitant]
     Active Substance: POLYETHYLENE GLYCOL 3350
  31. LISINOPRIL. [Concomitant]
     Active Substance: LISINOPRIL

REACTIONS (10)
  - Diarrhoea [Recovering/Resolving]
  - Vomiting [Recovering/Resolving]
  - Asthenia [Recovering/Resolving]
  - Weight decreased [Recovering/Resolving]
  - Decreased appetite [Not Recovered/Not Resolved]
  - Fatigue [Recovering/Resolving]
  - Nausea [Recovering/Resolving]
  - Blood glucose decreased [Recovered/Resolved]
  - Back pain [Not Recovered/Not Resolved]
  - Blood pressure increased [Recovering/Resolving]

NARRATIVE: CASE EVENT DATE: 2019
